FAERS Safety Report 6055790-1 (Version None)
Quarter: 2009Q1

REPORT INFORMATION
  Report Type: 
  Country: None (occurrence: None)
  Receive Date: 20090128
  Receipt Date: 20090122
  Transmission Date: 20090719
  Serious: Yes (Death)
  Sender: FDA-Public Use
  Company Number: PHHO2007MX09705

PATIENT
  Sex: Male
  Weight: 80 kg

DRUGS (5)
  1. DIOVAN [Suspect]
     Indication: HYPERTENSION
     Dosage: 320 MG, QD
     Route: 048
     Dates: start: 20040201
  2. EPOGEN [Concomitant]
  3. FERROUS SULFATE TAB [Concomitant]
  4. CALCIUM [Concomitant]
  5. HEMODIALYSIS [Concomitant]

REACTIONS (4)
  - GASTROINTESTINAL HAEMORRHAGE [None]
  - PNEUMONIA [None]
  - RENAL FAILURE CHRONIC [None]
  - SEPSIS [None]
